FAERS Safety Report 13524385 (Version 2)
Quarter: 2017Q2

REPORT INFORMATION
  Report Type: Spontaneous
  Country: IT (occurrence: IT)
  Receive Date: 20170508
  Receipt Date: 20170517
  Transmission Date: 20170830
  Serious: Yes (Other)
  Sender: FDA-Public Use
  Company Number: IT-PFIZER INC-2017197867

PATIENT
  Age: 69 Year
  Sex: Male
  Weight: 51 kg

DRUGS (8)
  1. PALEXIA [Concomitant]
     Active Substance: TAPENTADOL HYDROCHLORIDE
  2. SIDERAL FORTE [Concomitant]
     Active Substance: ASCORBIC ACID\FERRIC PYROPHOSPHATE
  3. ENSURE [Concomitant]
     Active Substance: AMINO ACIDS\DEXTROSE\ELECTROLYTES NOS\SOYBEAN OIL\VITAMINS
  4. TORA-DOL [Concomitant]
     Active Substance: KETOROLAC TROMETHAMINE
  5. ALBUMIN (HUMAN) [Concomitant]
     Active Substance: ALBUMIN HUMAN
  6. PACLITAXEL. [Suspect]
     Active Substance: PACLITAXEL
     Indication: METASTASIS
     Dosage: 87 MG, CYCLIC
     Route: 042
     Dates: start: 20161205
  7. UGUROL [Concomitant]
     Active Substance: TRANEXAMIC ACID
  8. CLEXANE [Concomitant]
     Active Substance: ENOXAPARIN SODIUM
     Dosage: 4000 IU, UNK

REACTIONS (1)
  - Hypertransaminasaemia [Unknown]

NARRATIVE: CASE EVENT DATE: 20170113
